FAERS Safety Report 8366504-4 (Version None)
Quarter: 2012Q2

REPORT INFORMATION
  Report Type: 
  Country: None (occurrence: None)
  Receive Date: 20120517
  Receipt Date: 20120508
  Transmission Date: 20120825
  Serious: Yes (Other)
  Sender: FDA-Public Use
  Company Number: JP-VERTEX PHARMACEUTICALS INC.-AE-2012-006316

PATIENT
  Age: 60 Year
  Sex: Male

DRUGS (16)
  1. AMLODIPINE BESYLATE [Concomitant]
     Route: 048
  2. LOCHOLEST [Concomitant]
     Route: 048
     Dates: start: 20120121
  3. TELAVIC (TELAPREVIR) [Suspect]
     Route: 048
     Dates: start: 20120303, end: 20120316
  4. ALFAROL [Concomitant]
     Route: 048
     Dates: start: 20120121
  5. VITAMIN B12 [Concomitant]
     Route: 048
  6. LOXONIN [Concomitant]
     Route: 048
     Dates: start: 20120121
  7. REBETOL [Concomitant]
     Route: 048
     Dates: start: 20120225
  8. PEG-INTRON [Concomitant]
     Indication: HEPATITIS C
     Route: 051
     Dates: start: 20120121
  9. REBETOL [Concomitant]
     Route: 048
     Dates: start: 20120317
  10. TELAVIC (TELAPREVIR) [Suspect]
     Indication: HEPATITIS C
     Route: 048
     Dates: start: 20120121
  11. TELAVIC (TELAPREVIR) [Suspect]
     Route: 048
     Dates: start: 20120317, end: 20120413
  12. REBETOL [Concomitant]
     Route: 048
     Dates: start: 20120303, end: 20120316
  13. NEXIUM [Concomitant]
     Route: 048
     Dates: start: 20120121
  14. REBETOL [Concomitant]
     Indication: HEPATITIS C
     Route: 048
     Dates: start: 20120121, end: 20120224
  15. TALION [Concomitant]
     Route: 048
     Dates: start: 20120121
  16. SELBEX [Concomitant]
     Route: 048
     Dates: start: 20120121

REACTIONS (2)
  - RENAL IMPAIRMENT [None]
  - HAEMOGLOBIN DECREASED [None]
